FAERS Safety Report 5021247-X (Version None)
Quarter: 2006Q2

REPORT INFORMATION
  Report Type: 
  Country: None (occurrence: None)
  Receive Date: 20060608
  Receipt Date: 20060529
  Transmission Date: 20061013
  Serious: Yes (Other)
  Sender: FDA-Public Use
  Company Number: NL-ROCHE-449771

PATIENT
  Age: 44 Year
  Sex: Male

DRUGS (2)
  1. PEGASYS [Suspect]
     Dosage: STANDART DOSAGE.
     Route: 058
     Dates: start: 20050815
  2. COPEGUS [Suspect]
     Route: 048
     Dates: start: 20050815

REACTIONS (1)
  - SKIN HYPERPIGMENTATION [None]
